FAERS Safety Report 4615350-3 (Version None)
Quarter: 2005Q1

REPORT INFORMATION
  Report Type: 
  Country: None (occurrence: None)
  Receive Date: 20050317
  Receipt Date: 20050308
  Transmission Date: 20050727
  Serious: No
  Sender: FDA-Public Use
  Company Number: 2005AP01641

PATIENT
  Sex: 0

DRUGS (1)
  1. PROPOFOL [Suspect]
     Dosage: 30 MG / HR

REACTIONS (1)
  - LACTIC ACIDOSIS [None]
